FAERS Safety Report 7905320-1 (Version None)
Quarter: 2011Q4

REPORT INFORMATION
  Report Type: 
  Country: None (occurrence: None)
  Receive Date: 20111109
  Receipt Date: 20111101
  Transmission Date: 20120403
  Serious: Yes (Other)
  Sender: FDA-Public Use
  Company Number: FR-BAXTER-2011BH035247

PATIENT
  Age: 16 Year
  Sex: Male

DRUGS (4)
  1. CEFEPIME [Suspect]
     Indication: BRONCHITIS
     Route: 065
  2. TOBRAMYCIN [Concomitant]
     Indication: BRONCHITIS
     Route: 065
  3. SULFAMETHOXAZOLE AND TRIMETHOPRIM [Concomitant]
     Indication: BRONCHITIS
     Route: 065
  4. AZITHROMYCIN [Concomitant]
     Indication: BRONCHITIS
     Route: 065

REACTIONS (2)
  - NEPHRITIS [None]
  - NEUROTOXICITY [None]
